FAERS Safety Report 4301728-4 (Version None)
Quarter: 2004Q1

REPORT INFORMATION
  Report Type: 
  Country: None (occurrence: None)
  Receive Date: 20040126
  Receipt Date: 20031006
  Transmission Date: 20041129
  Serious: No
  Sender: FDA-Public Use
  Company Number: USA031049076

PATIENT
  Age: 11 Year
  Sex: Male
  Weight: 37 kg

DRUGS (2)
  1. STRATTERA [Suspect]
     Indication: ATTENTION DEFICIT/HYPERACTIVITY DISORDER
     Dosage: 40 MG / DAY
     Dates: start: 20030930
  2. PRILOSEC [Concomitant]

REACTIONS (8)
  - ABNORMAL BEHAVIOUR [None]
  - DECREASED APPETITE [None]
  - DEPRESSION [None]
  - DYSPEPSIA [None]
  - INFLUENZA [None]
  - IRRITABILITY [None]
  - MYDRIASIS [None]
  - PAIN [None]
